FAERS Safety Report 8197902-X (Version None)
Quarter: 2012Q1

REPORT INFORMATION
  Report Type: 
  Country: None (occurrence: None)
  Receive Date: 20120309
  Receipt Date: 20120229
  Transmission Date: 20120608
  Serious: Yes (Other)
  Sender: FDA-Public Use
  Company Number: US-SANOFI-AVENTIS-2012SA013973

PATIENT
  Sex: Female

DRUGS (5)
  1. OPTICLICK [Suspect]
     Dates: start: 20120201
  2. OPTICLICK [Suspect]
     Dates: start: 19950101, end: 20120201
  3. ANALGESICS [Concomitant]
  4. LANTUS [Suspect]
     Route: 058
     Dates: start: 20120201
  5. LANTUS [Suspect]
     Route: 058
     Dates: start: 19950101, end: 20120201

REACTIONS (1)
  - BACK DISORDER [None]
